FAERS Safety Report 10925479 (Version 1)
Quarter: 2015Q1

REPORT INFORMATION
  Report Type: Spontaneous
  Country: JP (occurrence: JP)
  Receive Date: 20150318
  Receipt Date: 20150318
  Transmission Date: 20150721
  Serious: Yes (Hospitalization, Other)
  Sender: FDA-Public Use
  Company Number: JP-ELI_LILLY_AND_COMPANY-JP201503003654

PATIENT
  Age: 30 Year
  Sex: Female

DRUGS (1)
  1. HUMALOG [Suspect]
     Active Substance: INSULIN LISPRO
     Indication: TYPE 1 DIABETES MELLITUS
     Dosage: UNK, VIA CSII
     Route: 058
     Dates: start: 2007

REACTIONS (7)
  - Gestational hypertension [Recovered/Resolved]
  - Shortened cervix [Recovered/Resolved]
  - Exposure during breast feeding [Unknown]
  - Oligohydramnios [Recovered/Resolved]
  - Maternal exposure before pregnancy [Unknown]
  - Placental transfusion syndrome [Recovered/Resolved]
  - Maternal exposure during pregnancy [Unknown]

NARRATIVE: CASE EVENT DATE: 20120928
